FAERS Safety Report 8340404-8 (Version None)
Quarter: 2012Q2

REPORT INFORMATION
  Report Type: 
  Country: None (occurrence: None)
  Receive Date: 20120507
  Receipt Date: 20120507
  Transmission Date: 20120825
  Serious: Yes (Other)
  Sender: FDA-Public Use
  Company Number: None

PATIENT
  Sex: Female
  Weight: 83.461 kg

DRUGS (1)
  1. HALDOL [Suspect]
     Indication: DEMENTIA
     Dosage: |DOSAGETEXT: 2MG||FREQ: 2 DAILY/MORE||ROUTE: ORAL|
     Route: 048
     Dates: start: 20120415, end: 20120504

REACTIONS (5)
  - ANXIETY [None]
  - BALANCE DISORDER [None]
  - COMMUNICATION DISORDER [None]
  - OFF LABEL USE [None]
  - INSOMNIA [None]
